FAERS Safety Report 24549416 (Version 1)
Quarter: 2024Q4

REPORT INFORMATION
  Report Type: Report from Study
  Country: CN (occurrence: CN)
  Receive Date: 20241025
  Receipt Date: 20241025
  Transmission Date: 20250115
  Serious: Yes (Death, Other)
  Sender: ROCHE
  Company Number: CN-ROCHE-10000111398

PATIENT

DRUGS (2)
  1. RITUXIMAB [Suspect]
     Active Substance: RITUXIMAB
     Indication: Glomerulonephritis membranous
     Route: 042
  2. OBINUTUZUMAB [Suspect]
     Active Substance: OBINUTUZUMAB
     Indication: Glomerulonephritis membranous
     Route: 042

REACTIONS (8)
  - Soft tissue infection [Unknown]
  - Hypotension [Unknown]
  - Blood creatinine increased [Unknown]
  - Pyrexia [Unknown]
  - Palpitations [Unknown]
  - Nausea [Unknown]
  - Pneumonia [Fatal]
  - COVID-19 [Fatal]
